FAERS Safety Report 9712155 (Version 3)
Quarter: 2014Q1

REPORT INFORMATION
  Report Type: Report from Study
  Country: DE (occurrence: DE)
  Receive Date: 20131126
  Receipt Date: 20140324
  Transmission Date: 20141002
  Serious: Yes (Other)
  Sender: FDA-Public Use
  Company Number: DE-BAYER-2013-142807

PATIENT
  Age: 36 Year
  Sex: Male

DRUGS (2)
  1. BETAFERON [Suspect]
     Indication: MULTIPLE SCLEROSIS
     Dosage: 250 ?G, QOD
     Route: 058
     Dates: start: 20111118, end: 20131031
  2. BETAFERON [Suspect]
     Indication: MULTIPLE SCLEROSIS

REACTIONS (4)
  - Multiple sclerosis [Recovering/Resolving]
  - Hypoaesthesia [Recovering/Resolving]
  - Abasia [Recovering/Resolving]
  - Multiple sclerosis [Not Recovered/Not Resolved]
